FAERS Safety Report 8637898 (Version 2)
Quarter: 2014Q1

REPORT INFORMATION
  Report Type: Spontaneous
  Country: US (occurrence: None)
  Receive Date: 20120323
  Receipt Date: 20130305
  Transmission Date: 20141002
  Serious: Yes (Hospitalization, Other)
  Sender: FDA-Public Use
  Company Number: 163-21880-11110191

PATIENT
  Age: 62 Year
  Sex: Male
  Weight: 83.92 kg

DRUGS (15)
  1. REVLIMID (LENALIDOMIDE) (15 MILLIGRAM, CAPSULES) [Suspect]
     Indication: PLASMA CELL MYELOMA
     Dosage: 15 MG, 1 IN 1, PO
     Route: 048
     Dates: start: 200904
  2. OXYGEN [Suspect]
     Indication: CHEST PAIN
     Dates: start: 20111027
  3. ACYCLOVIR [Concomitant]
  4. ALBUTEROL (SALBUTAMOL) [Concomitant]
  5. AMBIEN [Concomitant]
  6. CYMBALTA [Concomitant]
  7. FENTANYL (FENTANYL) [Concomitant]
  8. OSCAL [Concomitant]
  9. PULMICORT FLEXHALER [Concomitant]
  10. ZOMETA (ZOLEDRONIC ACID) [Concomitant]
  11. BACTRIM [Concomitant]
  12. ZOFRAN [Concomitant]
  13. TORADOL [Concomitant]
  14. PROAIR (FLUTICASONE PROPIONATE) [Concomitant]
  15. VICODIN (VICODIN) [Concomitant]

REACTIONS (3)
  - Non-cardiac chest pain [None]
  - Blood creatinine increased [None]
  - Compression fracture [None]
